FAERS Safety Report 21901820 (Version 2)
Quarter: 2023Q2

REPORT INFORMATION
  Report Type: Spontaneous
  Country: UZ (occurrence: UZ)
  Receive Date: 20230124
  Receipt Date: 20230519
  Transmission Date: 20230722
  Serious: Yes (Other)
  Sender: FDA-Public Use
  Company Number: UZ-JNJFOC-20230127450

PATIENT
  Age: 61 Year
  Sex: Male
  Weight: 61 kg

DRUGS (13)
  1. BEDAQUILINE [Suspect]
     Active Substance: BEDAQUILINE
     Indication: Pulmonary tuberculosis
     Route: 048
     Dates: start: 20221207, end: 20221220
  2. BEDAQUILINE [Suspect]
     Active Substance: BEDAQUILINE
     Indication: Tuberculosis
     Route: 048
     Dates: start: 20221221, end: 20221223
  3. BEDAQUILINE [Suspect]
     Active Substance: BEDAQUILINE
     Route: 048
     Dates: start: 20230104, end: 20230105
  4. BEDAQUILINE [Suspect]
     Active Substance: BEDAQUILINE
     Dosage: 3/7 ON (WEDNESDAY, FRIDAY AND MONDAY
     Route: 048
     Dates: start: 20230215
  5. DELAMANID [Suspect]
     Active Substance: DELAMANID
     Indication: Pulmonary tuberculosis
     Route: 048
     Dates: start: 20221206, end: 20221223
  6. DELAMANID [Suspect]
     Active Substance: DELAMANID
     Indication: Tuberculosis
     Route: 048
     Dates: start: 20221226, end: 20230105
  7. DELAMANID [Suspect]
     Active Substance: DELAMANID
     Dosage: 100 X 2
     Route: 048
     Dates: start: 20230215
  8. LINEZOLID [Suspect]
     Active Substance: LINEZOLID
     Indication: Pulmonary tuberculosis
     Route: 048
     Dates: start: 20221206, end: 20221223
  9. LINEZOLID [Suspect]
     Active Substance: LINEZOLID
     Indication: Tuberculosis
     Route: 048
     Dates: start: 20230101, end: 20230105
  10. LINEZOLID [Suspect]
     Active Substance: LINEZOLID
     Route: 048
     Dates: start: 20230215
  11. CLOFAZIMINE [Suspect]
     Active Substance: CLOFAZIMINE
     Indication: Pulmonary tuberculosis
     Route: 048
     Dates: start: 20221206, end: 20221223
  12. CLOFAZIMINE [Suspect]
     Active Substance: CLOFAZIMINE
     Indication: Tuberculosis
     Route: 048
     Dates: start: 20221229, end: 20230105
  13. CYCLOSERINE [Suspect]
     Active Substance: CYCLOSERINE
     Indication: Pulmonary tuberculosis
     Route: 065
     Dates: start: 20230215

REACTIONS (5)
  - Hypertonia [Recovering/Resolving]
  - Dilated cardiomyopathy [Recovering/Resolving]
  - Electrocardiogram QT prolonged [Recovered/Resolved]
  - Abdominal pain upper [Recovering/Resolving]
  - Nausea [Recovering/Resolving]

NARRATIVE: CASE EVENT DATE: 20221223
